FAERS Safety Report 7014400-7 (Version None)
Quarter: 2010Q3

REPORT INFORMATION
  Report Type: 
  Country: None (occurrence: None)
  Receive Date: 20100927
  Receipt Date: 20100914
  Transmission Date: 20110219
  Serious: Yes (Hospitalization, Other)
  Sender: FDA-Public Use
  Company Number: US-ELI_LILLY_AND_COMPANY-US201009004244

PATIENT
  Sex: Female

DRUGS (4)
  1. CYMBALTA [Suspect]
     Indication: DEPRESSION
     Dosage: 60 MG, DAILY (1/D)
     Dates: end: 20100912
  2. DIAZEPAM [Concomitant]
     Dosage: 10 MG, EACH EVENING
  3. PROTONIX [Concomitant]
  4. VITAMINS [Concomitant]

REACTIONS (3)
  - BACK DISORDER [None]
  - CRYING [None]
  - MOOD ALTERED [None]
